FAERS Safety Report 5836835-8 (Version None)
Quarter: 2008Q3

REPORT INFORMATION
  Report Type: 
  Country: None (occurrence: None)
  Receive Date: 20080806
  Receipt Date: 20080806
  Transmission Date: 20090109
  Serious: Yes (Life-Threatening)
  Sender: FDA-Public Use
  Company Number: None

PATIENT
  Age: 54 Year
  Sex: Female
  Weight: 56.6996 kg

DRUGS (2)
  1. MACROBID [Suspect]
     Indication: URINARY TRACT INFECTION
     Dosage: BID PO
     Route: 048
     Dates: start: 20080627, end: 20080627
  2. MACROBID [Suspect]
     Indication: URINARY TRACT INFECTION
     Dosage: BID PO
     Route: 048
     Dates: start: 20080703, end: 20080703

REACTIONS (5)
  - HYPERSENSITIVITY [None]
  - LUNG INFILTRATION [None]
  - NAUSEA [None]
  - PAIN [None]
  - PYREXIA [None]
